FAERS Safety Report 12336798 (Version 1)
Quarter: 2016Q2

REPORT INFORMATION
  Report Type: Spontaneous
  Country: BR (occurrence: BR)
  Receive Date: 20160505
  Receipt Date: 20160505
  Transmission Date: 20160815
  Serious: Yes (Other)
  Sender: FDA-Public Use
  Company Number: BR-JNJFOC-20160502008

PATIENT
  Age: 21 Year
  Sex: Female

DRUGS (1)
  1. RISPERDAL [Suspect]
     Active Substance: RISPERIDONE
     Indication: MENTAL DISORDER
     Route: 065

REACTIONS (4)
  - Off label use [Unknown]
  - Treatment noncompliance [Unknown]
  - Product use issue [Unknown]
  - Aggression [Unknown]
